FAERS Safety Report 4281860-4 (Version None)
Quarter: 2004Q1

REPORT INFORMATION
  Report Type: 
  Country: None (occurrence: None)
  Receive Date: 20040108
  Receipt Date: 20021218
  Transmission Date: 20041129
  Serious: Yes (Other)
  Sender: FDA-Public Use
  Company Number: HQ5070206NOV2002

PATIENT
  Age: 66 Year
  Sex: Female

DRUGS (24)
  1. PREMPRO [Suspect]
     Dosage: 0.625/2.5 MG DAILY, ORAL
     Route: 048
     Dates: start: 19970101, end: 20020701
  2. ZOLOFT [Concomitant]
  3. PREVACID [Concomitant]
  4. HYDROCODONE W/ACETAMINOPHEN (HYDROCODONE BITARTRATE/PARACETAMOL) [Concomitant]
  5. ZYRTEC [Concomitant]
  6. LEVAQUIN [Concomitant]
  7. DETROL [Concomitant]
  8. MAALOX (ALUMINUM HYDROXIDE GEL/MAGNESIUM HYDROXIDE) [Concomitant]
  9. ADVIL [Concomitant]
  10. ASPIRIN [Concomitant]
  11. HYCOTUSS (GUAIFENESIN/HYDROCODONE BITARTRATE) [Concomitant]
  12. TYLENOL [Concomitant]
  13. KLONOPIN [Concomitant]
  14. REMERON [Concomitant]
  15. THEOPHYLLINE [Concomitant]
  16. SINGULAIR [Concomitant]
  17. DARVOCET-N (DEXTROPROPOXYPHENE/PARACETAMOL) [Concomitant]
  18. RELAFEN [Concomitant]
  19. PROVENTIL (SALBUTAMOL SULFATE) [Concomitant]
  20. ATROVENT [Concomitant]
  21. LASIX [Concomitant]
  22. SEREVENT [Concomitant]
  23. AMACORT (TRIAMCINOLONE ACETONIDE) [Concomitant]
  24. LORABID [Concomitant]

REACTIONS (3)
  - BREAST CANCER FEMALE [None]
  - CEREBROVASCULAR ACCIDENT [None]
  - METRORRHAGIA [None]
